FAERS Safety Report 9433262 (Version 1)
Quarter: 2013Q3

REPORT INFORMATION
  Report Type: Spontaneous
  Country: NL (occurrence: NL)
  Receive Date: 20130731
  Receipt Date: 20130731
  Transmission Date: 20140515
  Serious: Yes (Life-Threatening)
  Sender: FDA-Public Use
  Company Number: NL-GLAXOSMITHKLINE-B0911067A

PATIENT
  Age: 7 Year
  Sex: Male
  Weight: 29 kg

DRUGS (3)
  1. ZOFRAN [Suspect]
     Indication: HAEMATEMESIS
     Dosage: 3MG FOUR TIMES PER DAY
     Route: 042
     Dates: start: 20130127, end: 20130128
  2. PIPAMPERON [Suspect]
     Indication: ABNORMAL BEHAVIOUR
     Dosage: 7DROP PER DAY
     Route: 048
     Dates: start: 2012, end: 20130128
  3. MOVICOLON [Concomitant]
     Route: 048

REACTIONS (3)
  - Electrocardiogram QT prolonged [Recovered/Resolved]
  - Ventricular fibrillation [Recovered/Resolved]
  - Drug interaction [Unknown]
